FAERS Safety Report 7713035-8 (Version None)
Quarter: 2011Q3

REPORT INFORMATION
  Report Type: 
  Country: None (occurrence: None)
  Receive Date: 20110822
  Receipt Date: 20110810
  Transmission Date: 20111222
  Serious: Yes (Life-Threatening, Other)
  Sender: FDA-Public Use
  Company Number: OSCN-NO-1107L-0163

PATIENT
  Age: 61 Year
  Sex: Female

DRUGS (4)
  1. ADRIAMYCIN PFS [Concomitant]
  2. DEXAMETHASONE [Concomitant]
  3. VINCRISTINE [Concomitant]
  4. OMNISCAN [Suspect]
     Indication: HEADACHE
     Dosage: HR, SINGLE DOSE,
     Dates: start: 20070101, end: 20070101

REACTIONS (1)
  - NEPHROGENIC SYSTEMIC FIBROSIS [None]
